FAERS Safety Report 19815574 (Version 1)
Quarter: 2021Q3

REPORT INFORMATION
  Report Type: Report from Study
  Country: ZA (occurrence: ZA)
  Receive Date: 20210909
  Receipt Date: 20210909
  Transmission Date: 20211014
  Serious: Yes (Death)
  Sender: FDA-Public Use
  Company Number: ZA-ASTRAZENECA-2021A716772

PATIENT
  Age: 45 Year
  Sex: Male

DRUGS (3)
  1. RAN PERINDOPRIL [Concomitant]
     Indication: HYPERTENSION
     Route: 048
  2. AMTAS [Concomitant]
     Indication: HYPERTENSION
     Route: 048
  3. SYMBICORD [Suspect]
     Active Substance: BUDESONIDE\FORMOTEROL
     Indication: ASTHMA
     Dosage: 160 UG/INHAL, TWO TIMES A DAY
     Route: 055

REACTIONS (1)
  - Death [Fatal]

NARRATIVE: CASE EVENT DATE: 20210812
